FAERS Safety Report 16123094 (Version 2)
Quarter: 2019Q2

REPORT INFORMATION
  Report Type: Report from Study
  Country: TW (occurrence: TW)
  Receive Date: 20190327
  Receipt Date: 20190409
  Transmission Date: 20190711
  Serious: Yes (Hospitalization, Other)
  Sender: FDA-Public Use
  Company Number: TW-JNJFOC-20190330300

PATIENT
  Age: 66 Year
  Sex: Male

DRUGS (10)
  1. STELARA [Suspect]
     Active Substance: USTEKINUMAB
     Indication: PSORIASIS
     Route: 058
     Dates: start: 20171221, end: 20190131
  2. STELARA [Suspect]
     Active Substance: USTEKINUMAB
     Indication: PSORIATIC ARTHROPATHY
     Route: 058
     Dates: start: 20171221, end: 20190131
  3. BETHANECHOL [Concomitant]
     Active Substance: BETHANECHOL
     Indication: URINARY RETENTION
     Route: 065
     Dates: start: 20180503, end: 20181118
  4. BISOPROLOL FUMARATE. [Concomitant]
     Active Substance: BISOPROLOL FUMARATE
     Indication: HYPERTENSION
     Dosage: 0.5 TAB/DAY
     Route: 065
     Dates: start: 20180310, end: 20190320
  5. CILOSTAZOL. [Concomitant]
     Active Substance: CILOSTAZOL
     Indication: INTERMITTENT CLAUDICATION
     Dosage: 0.5 TAB TWICE A DAY
     Route: 065
     Dates: start: 20180926, end: 20190320
  6. ALPRAZOLAM. [Concomitant]
     Active Substance: ALPRAZOLAM
     Indication: ANXIETY
     Dosage: 2 TABS HS(HALF STRENGTH OR AT BED TIME)
     Route: 065
     Dates: start: 20161006, end: 20190320
  7. BISOPROLOL FUMARATE. [Concomitant]
     Active Substance: BISOPROLOL FUMARATE
     Indication: ANGINA PECTORIS
     Dosage: 0.5 TAB/DAY
     Route: 065
     Dates: start: 20180310, end: 20190320
  8. PREDNISOLONE. [Concomitant]
     Active Substance: PREDNISOLONE
     Indication: HYPERSENSITIVITY
     Route: 065
     Dates: start: 20160720, end: 20190320
  9. BISOPROLOL FUMARATE. [Concomitant]
     Active Substance: BISOPROLOL FUMARATE
     Indication: CARDIAC FAILURE
     Dosage: 0.5 TAB/DAY
     Route: 065
     Dates: start: 20180310, end: 20190320
  10. CEPHRADINE [Concomitant]
     Active Substance: CEPHRADINE
     Indication: STAPHYLOCOCCAL INFECTION
     Dosage: 0.5 TAB/TWICE A DAY
     Route: 065
     Dates: start: 20181009, end: 20181109

REACTIONS (4)
  - Prostate cancer [Recovered/Resolved]
  - Lumbar spinal stenosis [Not Recovered/Not Resolved]
  - Spinal operation [Recovered/Resolved]
  - Venous occlusion [Unknown]

NARRATIVE: CASE EVENT DATE: 201807
